FAERS Safety Report 9256411 (Version 1)
Quarter: 2013Q2

REPORT INFORMATION
  Report Type: Report from Study
  Country: CR (occurrence: CR)
  Receive Date: 20130426
  Receipt Date: 20130426
  Transmission Date: 20140414
  Serious: Yes (Death)
  Sender: FDA-Public Use
  Company Number: CR-ROCHE-1218185

PATIENT
  Age: 64 Year
  Sex: Female

DRUGS (1)
  1. BONVIVA [Suspect]
     Indication: OSTEOPOROSIS
     Route: 048
     Dates: start: 20120627, end: 20130327

REACTIONS (2)
  - Dyspnoea [Fatal]
  - Septic shock [Fatal]
